FAERS Safety Report 15113660 (Version 1)
Quarter: 2018Q3

REPORT INFORMATION
  Report Type: Spontaneous
  Country: FR (occurrence: FR)
  Receive Date: 20180706
  Receipt Date: 20180706
  Transmission Date: 20181010
  Serious: Yes (Other)
  Sender: FDA-Public Use
  Company Number: FR-ACCORD-069188

PATIENT
  Age: 13 Year
  Sex: Female

DRUGS (4)
  1. ETOPOSIDE. [Concomitant]
     Active Substance: ETOPOSIDE
     Indication: OSTEOSARCOMA
     Dosage: FROM DAY 1 TO DAY 4 (WEEKS 4 AND 9).
  2. UROMITEXAN [Concomitant]
     Active Substance: MESNA
     Indication: PROPHYLAXIS
  3. METHOTREXATE. [Suspect]
     Active Substance: METHOTREXATE
     Indication: OSTEOSARCOMA
     Dosage: 1 TOTAL, ONCE A WEEK (WEEKS 1, 2, 3, 7, 8, 12, 13)
  4. IFOSFAMIDE. [Suspect]
     Active Substance: IFOSFAMIDE
     Indication: OSTEOSARCOMA
     Dosage: 3?HOUR IFOSFAMIDE INFUSION

REACTIONS (5)
  - Hepatic function abnormal [Unknown]
  - Hepatocellular injury [Unknown]
  - Off label use [Unknown]
  - Cholestasis [Unknown]
  - Encephalopathy [Recovering/Resolving]
